FAERS Safety Report 16986748 (Version 1)
Quarter: 2019Q4

REPORT INFORMATION
  Report Type: Spontaneous
  Country: US (occurrence: US)
  Receive Date: 20190918
  Receipt Date: 20190918
  Transmission Date: 20200122
  Serious: Yes (Hospitalization)
  Sender: FDA-Public Use
  Company Number: None

PATIENT
  Age: 65 Year
  Sex: Female
  Weight: 77.8 kg

DRUGS (1)
  1. CISPLATIN. [Suspect]
     Active Substance: CISPLATIN
     Dates: end: 20190903

REACTIONS (10)
  - Malaise [None]
  - Pulmonary thrombosis [None]
  - Oxygen saturation decreased [None]
  - Tachycardia [None]
  - Thrombosis [None]
  - Hypoxia [None]
  - Fatigue [None]
  - Pulmonary embolism [None]
  - Dyspnoea exertional [None]
  - Blood potassium decreased [None]

NARRATIVE: CASE EVENT DATE: 20190910
